FAERS Safety Report 5520922-8 (Version None)
Quarter: 2007Q4

REPORT INFORMATION
  Report Type: 
  Country: None (occurrence: None)
  Receive Date: 20071119
  Receipt Date: 20071110
  Transmission Date: 20080405
  Serious: Yes (Hospitalization)
  Sender: FDA-Public Use
  Company Number: US-AMGEN-STX252125

PATIENT
  Sex: Female

DRUGS (2)
  1. ENBREL [Suspect]
     Indication: RHEUMATOID ARTHRITIS
     Route: 058
     Dates: start: 19991101
  2. METHOTREXATE [Concomitant]
     Route: 065
     Dates: start: 19990101

REACTIONS (5)
  - ARTHRALGIA [None]
  - JOINT DESTRUCTION [None]
  - JOINT INSTABILITY [None]
  - JOINT LOCK [None]
  - TOOTH INFECTION [None]
